FAERS Safety Report 11933139 (Version 5)
Quarter: 2016Q1

REPORT INFORMATION
  Report Type: Spontaneous
  Country: IN (occurrence: IN)
  Receive Date: 20160121
  Receipt Date: 20160226
  Transmission Date: 20160526
  Serious: Yes (Hospitalization, Other)
  Sender: FDA-Public Use
  Company Number: IN-ROCHE-1696928

PATIENT
  Age: 50 Year
  Sex: Male

DRUGS (1)
  1. AVASTIN [Suspect]
     Active Substance: BEVACIZUMAB
     Indication: RETINOPATHY
     Dosage: 100/4ML?MFG DATE: NOV/2014
     Route: 031

REACTIONS (8)
  - Gastric disorder [Unknown]
  - Hypertension [Unknown]
  - Suspected transmission of an infectious agent via product [Unknown]
  - Cardiac disorder [Unknown]
  - Off label use [Unknown]
  - Blindness [Unknown]
  - Vomiting [Unknown]
  - Nausea [Unknown]

NARRATIVE: CASE EVENT DATE: 201601
